FAERS Safety Report 15268201 (Version 1)
Quarter: 2018Q3

REPORT INFORMATION
  Report Type: Spontaneous
  Country: US (occurrence: US)
  Receive Date: 20180724
  Receipt Date: 20180724
  Transmission Date: 20181010
  Serious: Yes (Hospitalization)
  Sender: FDA-Public Use
  Company Number: None

PATIENT
  Age: 72 Year
  Sex: Male

DRUGS (8)
  1. GLIPIZIDE. [Concomitant]
     Active Substance: GLIPIZIDE
  2. ASPIRIN. [Concomitant]
     Active Substance: ASPIRIN
  3. CLARITIN [Concomitant]
     Active Substance: LORATADINE
  4. ALBUTEROL. [Concomitant]
     Active Substance: ALBUTEROL
  5. FLONASE [Concomitant]
     Active Substance: FLUTICASONE PROPIONATE
  6. REPATHA [Suspect]
     Active Substance: EVOLOCUMAB
     Indication: CORONARY ARTERY DISEASE
     Route: 058
     Dates: start: 20170321
  7. GABAPENTIN. [Concomitant]
     Active Substance: GABAPENTIN
  8. FISH OIL [Concomitant]
     Active Substance: FISH OIL

REACTIONS (2)
  - Device malfunction [None]
  - Drug dose omission [None]
